FAERS Safety Report 7513019-9 (Version None)
Quarter: 2011Q2

REPORT INFORMATION
  Report Type: 
  Country: None (occurrence: None)
  Receive Date: 20110525
  Receipt Date: 20110525
  Transmission Date: 20111010
  Serious: Yes (Hospitalization, Other)
  Sender: FDA-Public Use
  Company Number: None

PATIENT
  Age: 62 Year
  Sex: Female
  Weight: 77.1115 kg

DRUGS (1)
  1. NUVIGIL [Suspect]
     Indication: NARCOLEPSY
     Dosage: 150 DAILY PO
     Route: 048
     Dates: start: 20110415, end: 20110505

REACTIONS (4)
  - OESOPHAGEAL PAIN [None]
  - ABSCESS LIMB [None]
  - HEADACHE [None]
  - GASTROINTESTINAL PAIN [None]
